FAERS Safety Report 23219847 (Version 2)
Quarter: 2025Q1

REPORT INFORMATION
  Report Type: Spontaneous
  Country: US (occurrence: US)
  Receive Date: 20231122
  Receipt Date: 20250227
  Transmission Date: 20250408
  Serious: No
  Sender: AVADEL CNS PHARMACEUTICALS, LLC
  Company Number: US-AVADEL CNS PHARMACEUTICALS, LLC-2023AVA00155

PATIENT
  Age: 18 Year
  Sex: Female

DRUGS (1)
  1. LUMRYZ [Suspect]
     Active Substance: SODIUM OXYBATE
     Dates: start: 202309

REACTIONS (3)
  - Hypersomnia [Not Recovered/Not Resolved]
  - Insomnia [Unknown]
  - Somnambulism [Unknown]

NARRATIVE: CASE EVENT DATE: 20230901
